FAERS Safety Report 4552606-7 (Version None)
Quarter: 2005Q1

REPORT INFORMATION
  Report Type: 
  Country: None (occurrence: None)
  Receive Date: 20050114
  Receipt Date: 20041105
  Transmission Date: 20050727
  Serious: Yes (Hospitalization)
  Sender: FDA-Public Use
  Company Number: US-GLAXOSMITHKLINE-A0533075A

PATIENT
  Sex: Female

DRUGS (2)
  1. IMITREX [Suspect]
     Indication: MIGRAINE
     Dosage: 6MG AS REQUIRED
     Route: 058
     Dates: start: 20041015, end: 20041015
  2. NO CONCURRENT MEDICATION [Concomitant]

REACTIONS (1)
  - HYPERSENSITIVITY [None]
